FAERS Safety Report 4582148-4 (Version None)
Quarter: 2005Q1

REPORT INFORMATION
  Report Type: 
  Country: None (occurrence: None)
  Receive Date: 20050119
  Receipt Date: 20040209
  Transmission Date: 20050727
  Serious: Yes (Hospitalization)
  Sender: FDA-Public Use
  Company Number: A03200400401

PATIENT
  Age: 50 Year
  Sex: Male
  Weight: 71.2147 kg

DRUGS (6)
  1. PLAVIX [Suspect]
     Indication: CORONARY ARTERY OCCLUSION
     Dosage: 75 MG QD - ORAL
     Route: 048
     Dates: start: 20030703, end: 20030801
  2. PLAVIX [Suspect]
     Indication: STENT PLACEMENT
     Dosage: 75 MG QD - ORAL
     Route: 048
     Dates: start: 20030703, end: 20030801
  3. HYDROCHLOROTHIAZIDE [Concomitant]
  4. FLUOXETINE [Concomitant]
  5. PANTOPRAZOLE SODIUM [Concomitant]
  6. LINISOPRIL [Concomitant]

REACTIONS (3)
  - BLOOD PRESSURE DECREASED [None]
  - HAEMATEMESIS [None]
  - RECTAL HAEMORRHAGE [None]
